FAERS Safety Report 4799588-0 (Version None)
Quarter: 2005Q4

REPORT INFORMATION
  Report Type: 
  Country: None (occurrence: None)
  Receive Date: 20051014
  Receipt Date: 20051007
  Transmission Date: 20060501
  Serious: Yes (Other)
  Sender: FDA-Public Use
  Company Number: US-MERCK-0510USA06231

PATIENT
  Sex: Female

DRUGS (1)
  1. VIOXX [Suspect]
     Indication: ARTHRALGIA
     Route: 048
     Dates: start: 20010412

REACTIONS (4)
  - ACTIVITIES OF DAILY LIVING IMPAIRED [None]
  - IMPAIRED DRIVING ABILITY [None]
  - ISCHAEMIC STROKE [None]
  - STRABISMUS [None]
